FAERS Safety Report 7498599-4 (Version None)
Quarter: 2011Q2

REPORT INFORMATION
  Report Type: 
  Country: None (occurrence: None)
  Receive Date: 20110524
  Receipt Date: 20110415
  Transmission Date: 20111010
  Serious: No
  Sender: FDA-Public Use
  Company Number: US-BAYER-2011-034665

PATIENT
  Sex: Female

DRUGS (2)
  1. MIRENA [Suspect]
     Indication: CONTRACEPTION
     Dosage: 20 ?G/D, CONT
     Route: 015
     Dates: start: 20110107, end: 20110406
  2. MIRENA [Suspect]
     Dosage: 20 UNK, UNK
     Dates: start: 20110107, end: 20110408

REACTIONS (3)
  - DEVICE DISLOCATION [None]
  - DISCOMFORT [None]
  - PELVIC PAIN [None]
